FAERS Safety Report 24019536 (Version 1)
Quarter: 2024Q2

REPORT INFORMATION
  Report Type: Spontaneous
  Country: US (occurrence: US)
  Receive Date: 20240627
  Receipt Date: 20240627
  Transmission Date: 20240716
  Serious: No
  Sender: FDA-Public Use
  Company Number: US-Biofrontera-2024BIO00095

PATIENT

DRUGS (1)
  1. AMELUZ [Suspect]
     Active Substance: AMINOLEVULINIC ACID HYDROCHLORIDE
     Indication: Actinic keratosis

REACTIONS (6)
  - Application site pain [Unknown]
  - Application site erythema [Unknown]
  - Application site vesicles [Unknown]
  - Off label use [Unknown]
  - Application site discolouration [Unknown]
  - Application site exfoliation [Unknown]
